FAERS Safety Report 8564711-9 (Version None)
Quarter: 2012Q3

REPORT INFORMATION
  Report Type: 
  Country: None (occurrence: None)
  Receive Date: 20120803
  Receipt Date: 19830308
  Transmission Date: 20120928
  Serious: No
  Sender: FDA-Public Use
  Company Number: US-009507513-83030158

PATIENT

DRUGS (3)
  1. CLINORIL [Suspect]
     Dosage: 300 MG, BID
     Route: 048
     Dates: start: 19811201, end: 19820120
  2. CLINORIL [Suspect]
     Indication: ARTHRITIS
     Dosage: 300 MG, BID
     Route: 048
     Dates: start: 19800601, end: 19810620
  3. TRICHLORMETHIAZIDE [Concomitant]
     Dosage: 4 MG, UNK
     Dates: start: 19730401

REACTIONS (4)
  - PARAESTHESIA [None]
  - PYREXIA [None]
  - DYSPEPSIA [None]
  - VOMITING [None]
